FAERS Safety Report 19467428 (Version 1)
Quarter: 2021Q2

REPORT INFORMATION
  Report Type: Spontaneous
  Country: US (occurrence: US)
  Receive Date: 20210625
  Receipt Date: 20210625
  Transmission Date: 20210717
  Serious: Yes (Death)
  Sender: FDA-Public Use
  Company Number: None

PATIENT
  Age: 75 Year
  Sex: Male

DRUGS (1)
  1. ESBRIET [Suspect]
     Active Substance: PIRFENIDONE
     Indication: IDIOPATHIC PULMONARY FIBROSIS
     Route: 048
     Dates: start: 20180613, end: 20210611

REACTIONS (7)
  - Small cell lung cancer metastatic [None]
  - Anaemia [None]
  - Hepatic lesion [None]
  - Biliary obstruction [None]
  - Gastrointestinal haemorrhage [None]
  - Liver function test increased [None]
  - Hypovolaemic shock [None]

NARRATIVE: CASE EVENT DATE: 20210617
